FAERS Safety Report 9714293 (Version 2)
Quarter: 2013Q4

REPORT INFORMATION
  Report Type: Spontaneous
  Country: US (occurrence: US)
  Receive Date: 20131126
  Receipt Date: 20131126
  Transmission Date: 20140711
  Serious: Yes (Hospitalization)
  Sender: FDA-Public Use
  Company Number: US-GILEAD-2008-0018991

PATIENT
  Age: 61 Year
  Sex: Female

DRUGS (6)
  1. LETAIRIS [Suspect]
     Indication: PULMONARY ARTERIAL HYPERTENSION
     Dosage: 5 MG, QD
     Route: 048
     Dates: start: 20080220
  2. FUROSEMIDE [Suspect]
  3. METOPROLOL [Concomitant]
  4. FOLIC ACID [Concomitant]
  5. DIGOXIN [Concomitant]
  6. IRON [Concomitant]

REACTIONS (1)
  - Haemoglobin decreased [Unknown]
